FAERS Safety Report 21686040 (Version 2)
Quarter: 2022Q4

REPORT INFORMATION
  Report Type: Spontaneous
  Country: US (occurrence: US)
  Receive Date: 20221206
  Receipt Date: 20221216
  Transmission Date: 20230113
  Serious: Yes (Death, Life-Threatening, Hospitalization, Other)
  Sender: FDA-Public Use
  Company Number: US-MLMSERVICE-20221125-3941251-1

PATIENT
  Age: 68 Year
  Sex: Female

DRUGS (5)
  1. PREDNISONE [Suspect]
     Active Substance: PREDNISONE
     Indication: Immunosuppressant drug therapy
     Dosage: UNK
  2. THYMOGLOBULIN [Suspect]
     Active Substance: LAPINE T-LYMPHOCYTE IMMUNE GLOBULIN
     Indication: Immunosuppressant drug therapy
     Dosage: UNK
  3. SOLU-MEDROL [Suspect]
     Active Substance: METHYLPREDNISOLONE SODIUM SUCCINATE
     Indication: Immunosuppressant drug therapy
     Dosage: UNK
  4. BELATACEPT [Suspect]
     Active Substance: BELATACEPT
     Indication: Immunosuppressant drug therapy
     Dosage: UNK
  5. MYCOPHENOLATE MOFETIL [Suspect]
     Active Substance: MYCOPHENOLATE MOFETIL
     Indication: Immunosuppressant drug therapy
     Dosage: UNK

REACTIONS (14)
  - Post transplant lymphoproliferative disorder [Fatal]
  - Diffuse large B-cell lymphoma [Fatal]
  - Mental status changes [Fatal]
  - Pyrexia [Fatal]
  - Pancytopenia [Fatal]
  - Lactic acidosis [Fatal]
  - Refractory cytopenia with unilineage dysplasia [Fatal]
  - Coagulopathy [Fatal]
  - Hyperbilirubinaemia [Fatal]
  - Hypertriglyceridaemia [Fatal]
  - Hypofibrinogenaemia [Fatal]
  - Hyperferritinaemia [Fatal]
  - Metastases to lymph nodes [Fatal]
  - Haemophagocytic lymphohistiocytosis [Fatal]
